FAERS Safety Report 24973247 (Version 2)
Quarter: 2025Q1

REPORT INFORMATION
  Report Type: Report from Study
  Country: DE (occurrence: DE)
  Receive Date: 20250216
  Receipt Date: 20250306
  Transmission Date: 20250409
  Serious: Yes (Other)
  Sender: UCB
  Company Number: DE-UCBSA-2025008155

PATIENT
  Sex: Male

DRUGS (3)
  1. FENFLURAMINE HYDROCHLORIDE [Suspect]
     Active Substance: FENFLURAMINE HYDROCHLORIDE
     Indication: Severe myoclonic epilepsy of infancy
     Dosage: 0.2 MILLIGRAM/KILOGRAM, ONCE DAILY (QD)
     Route: 048
     Dates: start: 20240909
  2. TOPIRAMATE [Concomitant]
     Active Substance: TOPIRAMATE
     Indication: Product used for unknown indication
  3. CLONAZEPAM [Concomitant]
     Active Substance: CLONAZEPAM
     Indication: Product used for unknown indication

REACTIONS (3)
  - Generalised tonic-clonic seizure [Recovering/Resolving]
  - Drug ineffective [Unknown]
  - Off label use [Unknown]
